FAERS Safety Report 20190127 (Version 34)
Quarter: 2024Q2

REPORT INFORMATION
  Report Type: Report from Study
  Country: DE (occurrence: DE)
  Receive Date: 20211215
  Receipt Date: 20240419
  Transmission Date: 20240716
  Serious: Yes (Death, Hospitalization, Other)
  Sender: FDA-Public Use
  Company Number: DE-TAKEDA-DE202010231

PATIENT
  Age: 62 Year
  Sex: Male

DRUGS (29)
  1. VONICOG ALFA [Suspect]
     Active Substance: VONICOG ALFA
     Indication: Von Willebrand^s disease
     Dosage: 1950 INTERNATIONAL UNIT, 2/WEEK
     Route: 042
     Dates: start: 20200303
  2. VONICOG ALFA [Suspect]
     Active Substance: VONICOG ALFA
     Dosage: 1950 INTERNATIONAL UNIT, 2/WEEK
     Route: 042
     Dates: start: 20200309
  3. VONICOG ALFA [Suspect]
     Active Substance: VONICOG ALFA
     Dosage: 3250 INTERNATIONAL UNIT, 2/WEEK
     Route: 042
     Dates: start: 20201203
  4. VONICOG ALFA [Suspect]
     Active Substance: VONICOG ALFA
     Dosage: 1300 INTERNATIONAL UNIT, 2/WEEK
     Route: 042
     Dates: start: 20210713
  5. VONICOG ALFA [Suspect]
     Active Substance: VONICOG ALFA
     Dosage: 1300 INTERNATIONAL UNIT, 2/WEEK
     Route: 042
     Dates: start: 20231219
  6. VONICOG ALFA [Suspect]
     Active Substance: VONICOG ALFA
     Dosage: 650 INTERNATIONAL UNIT, 3/WEEK
     Route: 042
  7. VONICOG ALFA [Suspect]
     Active Substance: VONICOG ALFA
     Dosage: 2600 INTERNATIONAL UNIT, 2/WEEK
     Route: 042
  8. VONICOG ALFA [Suspect]
     Active Substance: VONICOG ALFA
     Dosage: 1300 INTERNATIONAL UNIT, 3/WEEK
     Route: 042
  9. VONICOG ALFA [Suspect]
     Active Substance: VONICOG ALFA
     Dosage: 650 INTERNATIONAL UNIT, 2/WEEK
     Route: 042
  10. VONICOG ALFA [Suspect]
     Active Substance: VONICOG ALFA
     Dosage: 1300 INTERNATIONAL UNIT, 2/WEEK
     Route: 042
  11. VONICOG ALFA [Suspect]
     Active Substance: VONICOG ALFA
     Dosage: 1950 INTERNATIONAL UNIT, 2/WEEK
     Route: 042
  12. VONICOG ALFA [Suspect]
     Active Substance: VONICOG ALFA
     Dosage: 1950 INTERNATIONAL UNIT, 2/WEEK
     Route: 042
  13. VONICOG ALFA [Suspect]
     Active Substance: VONICOG ALFA
     Dosage: 650 INTERNATIONAL UNIT, 2/WEEK
     Route: 042
  14. VONICOG ALFA [Suspect]
     Active Substance: VONICOG ALFA
     Dosage: 1950 INTERNATIONAL UNIT, 3/WEEK
     Route: 042
  15. VONICOG ALFA [Suspect]
     Active Substance: VONICOG ALFA
     Dosage: UNK UNK, 2/WEEK
     Route: 042
  16. VONICOG ALFA [Suspect]
     Active Substance: VONICOG ALFA
     Dosage: 1300 INTERNATIONAL UNIT
     Route: 065
  17. VONICOG ALFA [Suspect]
     Active Substance: VONICOG ALFA
     Dosage: 650 INTERNATIONAL UNIT
     Route: 065
  18. VONICOG ALFA [Suspect]
     Active Substance: VONICOG ALFA
     Dosage: 1300 INTERNATIONAL UNIT, 2/WEEK
     Route: 042
  19. VONICOG ALFA [Suspect]
     Active Substance: VONICOG ALFA
     Dosage: 650 INTERNATIONAL UNIT, 2/WEEK
     Route: 042
  20. VONICOG ALFA [Suspect]
     Active Substance: VONICOG ALFA
     Dosage: 1950 INTERNATIONAL UNIT, 2/WEEK
     Route: 042
  21. VONICOG ALFA [Suspect]
     Active Substance: VONICOG ALFA
     Dosage: 1950 INTERNATIONAL UNIT, 2/WEEK
     Route: 042
  22. VONICOG ALFA [Suspect]
     Active Substance: VONICOG ALFA
     Dosage: 650 INTERNATIONAL UNIT, 2/WEEK
     Route: 042
  23. VONICOG ALFA [Suspect]
     Active Substance: VONICOG ALFA
     Dosage: 1950 INTERNATIONAL UNIT, 2/WEEK
     Route: 042
  24. VONICOG ALFA [Suspect]
     Active Substance: VONICOG ALFA
     Dosage: 1950 INTERNATIONAL UNIT, 2/WEEK
     Route: 042
  25. VONICOG ALFA [Suspect]
     Active Substance: VONICOG ALFA
     Dosage: 1950 INTERNATIONAL UNIT, 2/WEEK
     Route: 042
  26. VONICOG ALFA [Suspect]
     Active Substance: VONICOG ALFA
     Dosage: 1950 INTERNATIONAL UNIT, 2/WEEK
     Route: 042
  27. VONICOG ALFA [Suspect]
     Active Substance: VONICOG ALFA
     Dosage: 1950 INTERNATIONAL UNIT, 2/WEEK
     Route: 042
  28. APALUTAMIDE [Concomitant]
     Active Substance: APALUTAMIDE
     Dosage: UNK
     Route: 065
  29. DENOSUMAB [Concomitant]
     Active Substance: DENOSUMAB
     Dosage: UNK
     Route: 065

REACTIONS (29)
  - Death [Fatal]
  - Cardiac failure [Recovered/Resolved]
  - Dyspnoea [Unknown]
  - Prostate cancer metastatic [Not Recovered/Not Resolved]
  - Gastrointestinal haemorrhage [Recovered/Resolved]
  - Melaena [Recovering/Resolving]
  - Stress cardiomyopathy [Recovered/Resolved]
  - Weight decreased [Recovered/Resolved]
  - Haematuria [Recovered/Resolved]
  - Gait disturbance [Unknown]
  - Anaemia [Unknown]
  - Micturition disorder [Recovered/Resolved]
  - Kidney congestion [Recovered/Resolved]
  - Blood pressure systolic decreased [Recovering/Resolving]
  - Immobile [Recovered/Resolved]
  - Lung neoplasm malignant [Unknown]
  - Haemoglobin decreased [Not Recovered/Not Resolved]
  - Infusion site haematoma [Not Recovered/Not Resolved]
  - Epistaxis [Recovered/Resolved]
  - General physical health deterioration [Recovered/Resolved]
  - Iron deficiency anaemia [Unknown]
  - Tooth fracture [Recovered/Resolved]
  - Blood pressure decreased [Recovered/Resolved]
  - Asthenia [Recovered/Resolved]
  - Poor venous access [Not Recovered/Not Resolved]
  - Back pain [Recovered/Resolved]
  - Arthralgia [Not Recovered/Not Resolved]
  - Product distribution issue [Unknown]
  - Incorrect dose administered [Recovered/Resolved]

NARRATIVE: CASE EVENT DATE: 20201201
